FAERS Safety Report 17638352 (Version 1)
Quarter: 2020Q2

REPORT INFORMATION
  Report Type: Spontaneous
  Country: TR (occurrence: TR)
  Receive Date: 20200407
  Receipt Date: 20200407
  Transmission Date: 20200713
  Serious: Yes (Hospitalization)
  Sender: FDA-Public Use
  Company Number: TR-AMNEAL PHARMACEUTICALS-2020-AMRX-01061

PATIENT
  Sex: Female

DRUGS (1)
  1. WARFARIN SODIUM. [Suspect]
     Active Substance: WARFARIN SODIUM
     Indication: ANTICOAGULANT THERAPY
     Dosage: UNK
     Route: 065

REACTIONS (7)
  - Back pain [Unknown]
  - Spinal subarachnoid haemorrhage [Unknown]
  - Subarachnoid haematoma [Unknown]
  - Spinal subdural haematoma [Unknown]
  - Spinal subdural haemorrhage [Unknown]
  - Paraplegia [Unknown]
  - Urinary incontinence [Unknown]
